FAERS Safety Report 15155818 (Version 1)
Quarter: 2018Q3

REPORT INFORMATION
  Report Type: Spontaneous
  Country: NL (occurrence: NL)
  Receive Date: 20180717
  Receipt Date: 20180717
  Transmission Date: 20181010
  Serious: Yes (Other)
  Sender: FDA-Public Use
  Company Number: NL-US WORLDMEDS, LLC-STA_00018061

PATIENT
  Age: 68 Year
  Sex: Male

DRUGS (1)
  1. APOMORPHINE HYDROCHLORIDE [Suspect]
     Active Substance: APOMORPHINE HYDROCHLORIDE
     Indication: PARKINSON^S DISEASE
     Dosage: FLOW 1: 0,4ML/HR (=2MG/HR) 16 HRS (DAYTIME), FLOW 2: 0.25ML/HR (=1,25MG/HR) 8HRS (DURING THE NIGHT),
     Route: 058
     Dates: start: 20160308

REACTIONS (2)
  - Impaired healing [Recovering/Resolving]
  - Hallucination [Not Recovered/Not Resolved]

NARRATIVE: CASE EVENT DATE: 201605
